FAERS Safety Report 23498733 (Version 1)
Quarter: 2024Q1

REPORT INFORMATION
  Report Type: Spontaneous
  Country: US (occurrence: US)
  Receive Date: 20240208
  Receipt Date: 20240208
  Transmission Date: 20240410
  Serious: Yes (Other)
  Sender: FDA-Public Use
  Company Number: US-PFIZER INC-PV202400017115

PATIENT
  Age: 71 Year
  Sex: Male
  Weight: 84.5 kg

DRUGS (2)
  1. INLYTA [Suspect]
     Active Substance: AXITINIB
     Indication: Metastatic renal cell carcinoma
     Dosage: 1 MG TABLET TAKE 3 TABLETS BY MOUTH TWICE A DAY
     Route: 048
     Dates: start: 20211005
  2. KEYTRUDA [Suspect]
     Active Substance: PEMBROLIZUMAB
     Dosage: UNK
     Dates: start: 20210927

REACTIONS (3)
  - Hyperthyroidism [Unknown]
  - Chronic kidney disease [Recovered/Resolved]
  - Rash pruritic [Recovered/Resolved]
